FAERS Safety Report 10009927 (Version 2)
Quarter: 2014Q1

REPORT INFORMATION
  Report Type: Spontaneous
  Country: US (occurrence: US)
  Receive Date: 20140312
  Receipt Date: 20140312
  Transmission Date: 20141002
  Serious: No
  Sender: FDA-Public Use
  Company Number: US-INCYTE CORPORATION-2013IN000246

PATIENT
  Age: 73 Year
  Sex: Male

DRUGS (5)
  1. JAKAFI [Suspect]
     Indication: MYELOFIBROSIS
     Dosage: 15 MG, BID (THREE 5 MG TABLETS)
     Route: 048
     Dates: start: 201210
  2. ALLEGRA [Concomitant]
  3. SIMVASTATIN [Concomitant]
  4. LEVOTHYROXINE [Concomitant]
  5. TYLENOL [Concomitant]
     Dosage: UNK
     Dates: start: 201210

REACTIONS (4)
  - Night sweats [Unknown]
  - Pruritus [Unknown]
  - Haemoglobin decreased [Unknown]
  - Red blood cell count decreased [Unknown]
